FAERS Safety Report 4904412-9 (Version None)
Quarter: 2006Q1

REPORT INFORMATION
  Report Type: 
  Country: None (occurrence: None)
  Receive Date: 20060208
  Receipt Date: 20050829
  Transmission Date: 20060701
  Serious: No
  Sender: FDA-Public Use
  Company Number: PAR-736-PC

PATIENT
  Age: 14 Year
  Sex: Female

DRUGS (1)
  1. PAROXETINE HCL [Suspect]
     Indication: EMOTIONAL DISTRESS
     Dosage: 10MG PER DAY
     Route: 048

REACTIONS (3)
  - ABDOMINAL PAIN UPPER [None]
  - DIZZINESS [None]
  - HEADACHE [None]
